FAERS Safety Report 23385183 (Version 3)
Quarter: 2025Q1

REPORT INFORMATION
  Report Type: Spontaneous
  Country: US (occurrence: US)
  Receive Date: 20240110
  Receipt Date: 20250320
  Transmission Date: 20250408
  Serious: Yes (Other)
  Sender: ROCHE
  Company Number: US-ROCHE-3487731

PATIENT
  Sex: Female

DRUGS (10)
  1. XOLAIR [Suspect]
     Active Substance: OMALIZUMAB
     Indication: Asthma
     Dosage: (STRENGTH: 150 MG/ML)?INJECT TWO 150 MG SYRINGES ALONG WITH ONE 75 MG SYRINGE
     Route: 058
     Dates: start: 20230127
  2. XOLAIR [Suspect]
     Active Substance: OMALIZUMAB
  3. PREDNISONE [Concomitant]
     Active Substance: PREDNISONE
  4. BENZONATATE [Concomitant]
     Active Substance: BENZONATATE
  5. DUPIXENT [Concomitant]
     Active Substance: DUPILUMAB
  6. MONTELUKAST [Concomitant]
     Active Substance: MONTELUKAST
  7. FASENRA [Concomitant]
     Active Substance: BENRALIZUMAB
  8. GUAIFENESIN [Concomitant]
     Active Substance: GUAIFENESIN
  9. LIDOCAINE [Concomitant]
     Active Substance: LIDOCAINE
  10. LYRICA [Concomitant]
     Active Substance: PREGABALIN

REACTIONS (1)
  - Asthma [Unknown]
